FAERS Safety Report 13570638 (Version 7)
Quarter: 2019Q3

REPORT INFORMATION
  Report Type: Spontaneous
  Country: CA (occurrence: CA)
  Receive Date: 20170523
  Receipt Date: 20190921
  Transmission Date: 20191004
  Serious: Yes (Life-Threatening, Hospitalization, Disabling, Other)
  Sender: FDA-Public Use
  Company Number: CA-AUROBINDO-AUR-APL-2017-34600

PATIENT
  Age: 12 Day
  Sex: Male
  Weight: 3.9 kg

DRUGS (31)
  1. LAMOTRIGINE TABLET [Suspect]
     Active Substance: LAMOTRIGINE
     Dosage: 250 MILLIGRAM, ONCE A DAY
     Route: 063
  2. ARIPIPRAZOLE TABLETS [Suspect]
     Active Substance: ARIPIPRAZOLE
     Indication: BIPOLAR DISORDER
     Dosage: 15 MILLIGRAM, ONCE A DAY
     Route: 064
  3. ARIPIPRAZOLE TABLETS [Suspect]
     Active Substance: ARIPIPRAZOLE
     Dosage: 15 MILLIGRAM, ONCE A DAY
     Route: 064
  4. ABILIFY [Suspect]
     Active Substance: ARIPIPRAZOLE
     Indication: PRODUCT USED FOR UNKNOWN INDICATION
     Dosage: 15 MILLIGRAM, ONCE A DAY
     Route: 064
  5. ACETAMINOPHEN;CODEINE [Suspect]
     Active Substance: ACETAMINOPHEN\CODEINE PHOSPHATE
     Indication: PRODUCT USED FOR UNKNOWN INDICATION
     Dosage: UNK
     Route: 063
  6. DOCUSATE [Suspect]
     Active Substance: DOCUSATE
     Dosage: UNK
     Route: 063
  7. SERTRALINE [Suspect]
     Active Substance: SERTRALINE HYDROCHLORIDE
     Dosage: 100 MILLIGRAM, ONCE A DAY
     Route: 064
  8. SERTRALINE [Suspect]
     Active Substance: SERTRALINE HYDROCHLORIDE
     Dosage: 100 MILLIGRAM, ONCE A DAY
     Route: 063
  9. LEVOTHYROXINE. [Suspect]
     Active Substance: LEVOTHYROXINE
     Dosage: 50 MICROGRAM, ONCE A DAY
     Route: 065
  10. FOLIC ACID. [Suspect]
     Active Substance: FOLIC ACID
     Dosage: UNK
     Route: 063
  11. LAMOTRIGINE TABLET [Suspect]
     Active Substance: LAMOTRIGINE
     Dosage: 250 MILLIGRAM, ONCE A DAY
     Route: 063
  12. DOCUSATE [Suspect]
     Active Substance: DOCUSATE
     Indication: PRODUCT USED FOR UNKNOWN INDICATION
     Dosage: UNK
     Route: 064
  13. APO-LAMOTRIGINE [Suspect]
     Active Substance: LAMOTRIGINE
     Indication: BIPOLAR DISORDER
     Dosage: 250 MILLIGRAM, ONCE A DAY
     Route: 064
  14. ACETAMINOPHEN. [Concomitant]
     Active Substance: ACETAMINOPHEN
     Indication: PRODUCT USED FOR UNKNOWN INDICATION
     Dosage: UNK
     Route: 065
  15. LAMOTRIGINE TABLET [Suspect]
     Active Substance: LAMOTRIGINE
     Indication: BIPOLAR DISORDER
     Dosage: 250 MILLIGRAM, ONCE A DAY
     Route: 064
  16. ARIPIPRAZOLE TABLETS [Suspect]
     Active Substance: ARIPIPRAZOLE
     Dosage: 15 MILLIGRAM, ONCE A DAY
     Route: 063
  17. ARIPIPRAZOLE TABLETS [Suspect]
     Active Substance: ARIPIPRAZOLE
     Dosage: 15 MILLIGRAM, ONCE A DAY
     Route: 063
  18. SERTRALINE [Suspect]
     Active Substance: SERTRALINE HYDROCHLORIDE
     Dosage: 100 MILLIGRAM, ONCE A DAY
     Route: 063
  19. ABILIFY [Suspect]
     Active Substance: ARIPIPRAZOLE
     Dosage: 15 MILLIGRAM, ONCE A DAY
     Route: 063
  20. ACETAMINOPHEN;CODEINE [Suspect]
     Active Substance: ACETAMINOPHEN\CODEINE PHOSPHATE
     Dosage: UNK
     Route: 064
  21. NAPROXEN. [Suspect]
     Active Substance: NAPROXEN
     Indication: PRODUCT USED FOR UNKNOWN INDICATION
     Dosage: UNK
     Route: 064
  22. MULTIVIT [Concomitant]
     Active Substance: VITAMINS
     Dosage: UNK
     Route: 063
  23. FOLIC ACID. [Suspect]
     Active Substance: FOLIC ACID
     Indication: PRODUCT USED FOR UNKNOWN INDICATION
     Dosage: UNK
     Route: 064
  24. NAPROXEN. [Suspect]
     Active Substance: NAPROXEN
     Dosage: UNK
     Route: 063
  25. D-ALPHA TOCOPHERYL ACETATE [Suspect]
     Active Substance: .ALPHA.-TOCOPHEROL ACETATE, D-
     Indication: PRODUCT USED FOR UNKNOWN INDICATION
     Dosage: UNK
     Route: 065
  26. MULTIVIT [Concomitant]
     Active Substance: VITAMINS
     Indication: PRODUCT USE IN UNAPPROVED INDICATION
     Dosage: UNK
     Route: 064
  27. LAMOTRIGINE TABLET [Suspect]
     Active Substance: LAMOTRIGINE
     Dosage: UNK
     Route: 064
  28. SERTRALINE [Suspect]
     Active Substance: SERTRALINE HYDROCHLORIDE
     Indication: BIPOLAR DISORDER
     Dosage: 100 MILLIGRAM, ONCE A DAY
     Route: 064
  29. LEVOTHYROXINE. [Suspect]
     Active Substance: LEVOTHYROXINE
     Indication: PRODUCT USED FOR UNKNOWN INDICATION
     Dosage: UNK
     Route: 063
  30. LEVOTHYROXINE. [Suspect]
     Active Substance: LEVOTHYROXINE
     Dosage: 50 MICROGRAM, ONCE A DAY
     Route: 064
  31. APO-LAMOTRIGINE [Suspect]
     Active Substance: LAMOTRIGINE
     Dosage: 250 MILLIGRAM, ONCE A DAY
     Route: 063

REACTIONS (51)
  - Acute kidney injury [Recovered/Resolved]
  - Maternal exposure during breast feeding [Recovered/Resolved]
  - Mucosal disorder [Recovered/Resolved]
  - Gross motor delay [Recovered/Resolved]
  - Heart rate increased [Recovered/Resolved]
  - Hypoperfusion [Recovered/Resolved]
  - Disseminated intravascular coagulation [Recovered/Resolved]
  - Skin turgor decreased [Recovered/Resolved]
  - Hypovolaemic shock [Recovered/Resolved]
  - Acidosis [Recovered/Resolved]
  - Skin discolouration [Recovered/Resolved]
  - Exposure via breast milk [Recovered/Resolved]
  - Irritability [Recovered/Resolved]
  - Mucosal dryness [Recovered/Resolved]
  - Gangrene neonatal [Recovered/Resolved]
  - Partial seizures with secondary generalisation [Recovered/Resolved]
  - Seizure [Recovered/Resolved with Sequelae]
  - Blood urea abnormal [Recovered/Resolved]
  - Livedo reticularis [Recovered/Resolved]
  - Blood lactate dehydrogenase abnormal [Unknown]
  - Hypokinesia [Recovered/Resolved]
  - Pallor [Recovered/Resolved]
  - Gangrene [Recovered/Resolved]
  - Hyporesponsive to stimuli [Recovered/Resolved]
  - Blood pH abnormal [Unknown]
  - White blood cell count increased [Recovered/Resolved]
  - International normalised ratio decreased [Unknown]
  - Blood fibrinogen decreased [Unknown]
  - Hyponatraemia [Recovered/Resolved]
  - Foetal exposure during pregnancy [Recovered/Resolved]
  - Blood glucose increased [Recovered/Resolved]
  - Somnolence [Recovered/Resolved]
  - Hypotension [Recovered/Resolved]
  - Respiratory rate increased [Recovered/Resolved]
  - PCO2 abnormal [Unknown]
  - Blood creatinine increased [Recovered/Resolved]
  - Prothrombin time prolonged [Unknown]
  - Moaning [Recovered/Resolved]
  - Necrosis [Recovered/Resolved]
  - Rhabdomyolysis [Recovered/Resolved]
  - Weight decrease neonatal [Recovered/Resolved]
  - Weight decreased [Recovered/Resolved]
  - Hypernatraemia [Recovered/Resolved]
  - Dehydration [Recovered/Resolved]
  - Partial seizures [Recovered/Resolved]
  - Peripheral artery thrombosis [Recovered/Resolved]
  - Alanine aminotransferase increased [Recovered/Resolved]
  - Lethargy [Recovered/Resolved]
  - Petechiae [Recovered/Resolved]
  - Blood bicarbonate abnormal [Unknown]
  - Peripheral artery thrombosis [Recovered/Resolved]

NARRATIVE: CASE EVENT DATE: 2013
